FAERS Safety Report 20356809 (Version 1)
Quarter: 2022Q1

REPORT INFORMATION
  Report Type: Report from Study
  Country: DE (occurrence: DE)
  Receive Date: 20220120
  Receipt Date: 20220120
  Transmission Date: 20220423
  Serious: No
  Sender: FDA-Public Use
  Company Number: DE-KARYOPHARM-2022KPT000002

PATIENT
  Age: 10 Year
  Sex: Male
  Weight: 23.4 kg

DRUGS (3)
  1. SELINEXOR [Suspect]
     Active Substance: SELINEXOR
     Indication: Nephroblastoma
     Dosage: 40 MG, DAYS -3 AND -2
     Route: 048
     Dates: start: 20211218, end: 20211219
  2. SELINEXOR [Suspect]
     Active Substance: SELINEXOR
     Dosage: 40 MG, 2X/WEEK
     Route: 048
     Dates: start: 202201
  3. MELPHALAN [Concomitant]
     Active Substance: MELPHALAN
     Indication: Nephroblastoma
     Dosage: 100 MG/M2, DAYS -3 AND -2
     Dates: start: 20211218, end: 20211219

REACTIONS (5)
  - Nausea [Recovered/Resolved]
  - Hyponatraemia [Recovered/Resolved]
  - Anaemia [Recovered/Resolved]
  - Febrile neutropenia [Recovered/Resolved]
  - Thrombocytopenia [Recovered/Resolved]

NARRATIVE: CASE EVENT DATE: 20211219
